FAERS Safety Report 12389860 (Version 1)
Quarter: 2016Q2

REPORT INFORMATION
  Report Type: Report from Study
  Country: JP (occurrence: TW)
  Receive Date: 20160520
  Receipt Date: 20160520
  Transmission Date: 20160815
  Serious: No
  Sender: FDA-Public Use
  Company Number: TW-FRI-1000083250

PATIENT
  Age: 38 Year
  Sex: Male
  Weight: 72.7 kg

DRUGS (19)
  1. ZOLPIDEM [Concomitant]
     Active Substance: ZOLPIDEM\ZOLPIDEM TARTRATE
     Route: 048
     Dates: start: 20131221
  2. LORAZEPAM. [Concomitant]
     Active Substance: LORAZEPAM
     Indication: RESTLESSNESS
     Route: 048
     Dates: start: 20131117, end: 20131117
  3. XIAOZHI WAN, HUAIHU, DIYU, HUANGQUIN, CHISHAO, HUANGLIAN, DIHUANG, CEB [Concomitant]
     Indication: HAEMORRHOIDS
     Route: 048
     Dates: start: 20140721, end: 20140731
  4. PALIPERIDONE. [Concomitant]
     Active Substance: PALIPERIDONE
     Indication: SCHIZOPHRENIA
     Route: 048
     Dates: start: 20141120
  5. LORAZEPAM. [Concomitant]
     Active Substance: LORAZEPAM
     Route: 048
     Dates: start: 20131221
  6. ALCOS-ANAL [Concomitant]
     Indication: HAEMORRHOIDS
     Route: 054
     Dates: start: 20140502, end: 20140508
  7. CARIPRAZINE [Suspect]
     Active Substance: CARIPRAZINE
     Dates: start: 20131221, end: 20140129
  8. LORAZEPAM. [Concomitant]
     Active Substance: LORAZEPAM
     Indication: AGITATION
     Route: 048
     Dates: start: 20131113, end: 20131113
  9. TRIHEXYPHENIDYL HCL [Concomitant]
     Active Substance: TRIHEXYPHENIDYL HYDROCHLORIDE
     Route: 048
     Dates: start: 20140424, end: 20141125
  10. CARIPRAZINE [Suspect]
     Active Substance: CARIPRAZINE
     Indication: SCHIZOPHRENIA
     Dates: start: 20131108, end: 20131220
  11. EVAC [Concomitant]
     Indication: HAEMORRHOIDS
     Route: 054
     Dates: start: 20140502, end: 20140502
  12. TRIHEXYPHENIDYL HCL [Concomitant]
     Active Substance: TRIHEXYPHENIDYL HYDROCHLORIDE
     Route: 048
     Dates: start: 20141201
  13. CARIPRAZINE [Suspect]
     Active Substance: CARIPRAZINE
     Dates: start: 20140130, end: 20140226
  14. TRIHEXYPHENIDYL HCL [Concomitant]
     Active Substance: TRIHEXYPHENIDYL HYDROCHLORIDE
     Indication: EXTRAPYRAMIDAL DISORDER
     Route: 048
     Dates: start: 20131117, end: 20140103
  15. SODIUM PHOSPHATE [Concomitant]
     Active Substance: SODIUM PHOSPHATE
     Indication: HAEMORRHOIDS
     Route: 048
     Dates: start: 20140502, end: 20140502
  16. CARIPRAZINE [Suspect]
     Active Substance: CARIPRAZINE
     Dates: start: 20140227, end: 20141119
  17. ZOLPIDEM [Concomitant]
     Active Substance: ZOLPIDEM\ZOLPIDEM TARTRATE
     Indication: INSOMNIA
     Route: 048
     Dates: end: 20131108
  18. ZOLPIDEM [Concomitant]
     Active Substance: ZOLPIDEM\ZOLPIDEM TARTRATE
     Route: 048
     Dates: start: 20131113, end: 20131113
  19. TRIHEXYPHENIDYL HCL [Concomitant]
     Active Substance: TRIHEXYPHENIDYL HYDROCHLORIDE
     Route: 048
     Dates: start: 20141126, end: 20141130

REACTIONS (1)
  - Lenticular opacities [Recovered/Resolved]

NARRATIVE: CASE EVENT DATE: 20140311
